FAERS Safety Report 15180471 (Version 2)
Quarter: 2018Q3

REPORT INFORMATION
  Report Type: Report from Study
  Country: GB (occurrence: GB)
  Receive Date: 20180723
  Receipt Date: 20180725
  Transmission Date: 20181010
  Serious: Yes (Other)
  Sender: FDA-Public Use
  Company Number: PHHY2018GB032580

PATIENT
  Age: 41 Year
  Sex: Female

DRUGS (1)
  1. COSENTYX [Suspect]
     Active Substance: SECUKINUMAB
     Indication: PSORIASIS
     Dosage: 300 MG, QW (0 LOADING DOSE)
     Route: 058
     Dates: start: 20180607

REACTIONS (8)
  - Mouth ulceration [Unknown]
  - Dry skin [Unknown]
  - Oral pain [Unknown]
  - Oral herpes [Unknown]
  - Fatigue [Unknown]
  - Device use error [Unknown]
  - Oral candidiasis [Unknown]
  - Pruritus generalised [Unknown]

NARRATIVE: CASE EVENT DATE: 20180621
